FAERS Safety Report 5754137-5 (Version None)
Quarter: 2008Q2

REPORT INFORMATION
  Report Type: 
  Country: None (occurrence: None)
  Receive Date: 20080528
  Receipt Date: 20080528
  Transmission Date: 20081010
  Serious: Yes (Hospitalization)
  Sender: FDA-Public Use
  Company Number: None

PATIENT
  Age: 55 Year
  Sex: Male
  Weight: 68 kg

DRUGS (2)
  1. GEMCITABINE [Suspect]
     Indication: PANCREATIC CARCINOMA
     Dosage: 1450MG QWK X3/CYCLE IV
     Route: 042
     Dates: start: 20080226, end: 20080506
  2. LAPATINIB 1500 MG/DAY [Suspect]
     Indication: PANCREATIC CARCINOMA
     Dosage: 1500MG DAILY PO
     Route: 048
     Dates: start: 20080226, end: 20080520

REACTIONS (14)
  - ABDOMINAL PAIN UPPER [None]
  - ALANINE AMINOTRANSFERASE ABNORMAL [None]
  - ANAEMIA [None]
  - ASPARTATE AMINOTRANSFERASE ABNORMAL [None]
  - BLOOD ALKALINE PHOSPHATASE ABNORMAL [None]
  - BLOOD BILIRUBIN ABNORMAL [None]
  - BLOOD SODIUM ABNORMAL [None]
  - CHILLS [None]
  - CHOLANGITIS [None]
  - FALL [None]
  - LEUKOCYTOSIS [None]
  - LIVER FUNCTION TEST ABNORMAL [None]
  - MALIGNANT NEOPLASM PROGRESSION [None]
  - PYREXIA [None]
